FAERS Safety Report 6878800-8 (Version None)
Quarter: 2010Q3

REPORT INFORMATION
  Report Type: 
  Country: None (occurrence: None)
  Receive Date: 20100728
  Receipt Date: 20100716
  Transmission Date: 20110219
  Serious: Yes (Hospitalization)
  Sender: FDA-Public Use
  Company Number: GB-NOVOPROD-307201

PATIENT
  Sex: Male
  Weight: 69.8 kg

DRUGS (3)
  1. MIXTARD HUMAN 70/30 [Suspect]
     Indication: TYPE 1 DIABETES MELLITUS
  2. ASPIRIN [Concomitant]
     Dosage: 75 MG, QD
  3. SIMVASTATIN [Concomitant]
     Dosage: 40 MG, QD

REACTIONS (3)
  - BLOOD GLUCOSE INCREASED [None]
  - DEVICE LEAKAGE [None]
  - DIABETIC KETOACIDOSIS [None]
